FAERS Safety Report 9358506 (Version 1)
Quarter: 2013Q2

REPORT INFORMATION
  Report Type: Spontaneous
  Country: US (occurrence: US)
  Receive Date: 20130620
  Receipt Date: 20130620
  Transmission Date: 20140414
  Serious: Yes (Hospitalization)
  Sender: FDA-Public Use
  Company Number: US-JNJFOC-20130608514

PATIENT
  Age: 77 Year
  Sex: Male

DRUGS (3)
  1. XARELTO [Suspect]
     Indication: THROMBOSIS PROPHYLAXIS
     Route: 048
     Dates: start: 20130514
  2. XARELTO [Suspect]
     Indication: KNEE ARTHROPLASTY
     Route: 048
     Dates: start: 20130514
  3. METFORMIN [Concomitant]
     Indication: DIABETES MELLITUS
     Route: 065

REACTIONS (2)
  - Haemorrhage [Unknown]
  - Platelet count decreased [Unknown]
